FAERS Safety Report 9283681 (Version 3)
Quarter: 2013Q3

REPORT INFORMATION
  Report Type: Spontaneous
  Country: US (occurrence: US)
  Receive Date: 20130510
  Receipt Date: 20130725
  Transmission Date: 20140515
  Serious: Yes (Hospitalization)
  Sender: FDA-Public Use
  Company Number: US-GLAXOSMITHKLINE-A1022338A

PATIENT
  Age: 53 Year
  Sex: Male

DRUGS (6)
  1. LAMOTRIGINE [Suspect]
     Indication: EPILEPSY
     Dosage: 200MG TWICE PER DAY
     Route: 048
     Dates: start: 201105
  2. KEPPRA [Suspect]
     Indication: PRODUCT USED FOR UNKNOWN INDICATION
     Dosage: 750MG TWICE PER DAY
     Route: 065
  3. SYNTHROID [Concomitant]
  4. CLOZARIL [Concomitant]
  5. ATENOLOL [Concomitant]
  6. MIRALAX [Concomitant]

REACTIONS (10)
  - Cognitive disorder [Unknown]
  - Amnesia [Unknown]
  - Memory impairment [Recovering/Resolving]
  - Communication disorder [Unknown]
  - Catatonia [Recovering/Resolving]
  - Stupor [Recovering/Resolving]
  - Dysarthria [Unknown]
  - Confusional state [Recovering/Resolving]
  - Hypersomnia [Unknown]
  - Somnolence [Unknown]
